FAERS Safety Report 24351346 (Version 1)
Quarter: 2024Q3

REPORT INFORMATION
  Report Type: Spontaneous
  Country: ES (occurrence: ES)
  Receive Date: 20240923
  Receipt Date: 20240923
  Transmission Date: 20241017
  Serious: Yes (Other)
  Sender: PFIZER
  Company Number: US-ROCHE-10000067607

PATIENT
  Age: 68 Year
  Sex: Female

DRUGS (2)
  1. TRASTUZUMAB [Suspect]
     Active Substance: TRASTUZUMAB
     Indication: HER2 positive breast cancer
     Dosage: 108 CUMULATIVE DOSE
     Route: 042
  2. PERTUZUMAB\TRASTUZUMAB [Concomitant]
     Active Substance: PERTUZUMAB\TRASTUZUMAB
     Indication: HER2 positive breast cancer
     Dosage: UNK

REACTIONS (1)
  - Cytokine release syndrome [Unknown]
